FAERS Safety Report 26109263 (Version 1)
Quarter: 2025Q4

REPORT INFORMATION
  Report Type: Spontaneous
  Country: KR (occurrence: KR)
  Receive Date: 20251201
  Receipt Date: 20251201
  Transmission Date: 20260117
  Serious: Yes (Other)
  Sender: ALCON
  Company Number: KR-SANTEN KOREA-2025-KOR-010562

PATIENT

DRUGS (1)
  1. RHOPRESSA [Suspect]
     Active Substance: NETARSUDIL MESYLATE
     Indication: Drug hypersensitivity
     Dosage: UNK
     Route: 047

REACTIONS (3)
  - Ocular hypertension [Unknown]
  - Headache [Unknown]
  - Eye pain [Unknown]
